FAERS Safety Report 18404633 (Version 1)
Quarter: 2020Q4

REPORT INFORMATION
  Report Type: Spontaneous
  Country: US (occurrence: US)
  Receive Date: 20201014
  Receipt Date: 20201014
  Transmission Date: 20210114
  Serious: No
  Sender: FDA-Public Use
  Company Number: None

PATIENT
  Age: 4 Year
  Sex: Male

DRUGS (1)
  1. RAVICTI [Suspect]
     Active Substance: GLYCEROL PHENYLBUTYRATE
     Indication: UREA RENAL CLEARANCE DECREASED
     Dosage: ?          OTHER DOSE:1.10000002ML;?
     Route: 048
     Dates: start: 20171122

REACTIONS (1)
  - Product label issue [None]

NARRATIVE: CASE EVENT DATE: 20201007
